FAERS Safety Report 6885393-8 (Version None)
Quarter: 2010Q3

REPORT INFORMATION
  Report Type: 
  Country: None (occurrence: None)
  Receive Date: 20100729
  Receipt Date: 20080721
  Transmission Date: 20110219
  Serious: No
  Sender: FDA-Public Use
  Company Number: US-PFIZER INC-2008059406

PATIENT
  Sex: Female

DRUGS (2)
  1. CELEBREX [Suspect]
     Indication: PAIN
     Dates: start: 20080713
  2. FLEXERIL [Suspect]
     Indication: PAIN
     Dates: start: 20080713

REACTIONS (1)
  - DRUG INEFFECTIVE [None]
